FAERS Safety Report 20678685 (Version 3)
Quarter: 2022Q2

REPORT INFORMATION
  Report Type: Report from Study
  Country: US (occurrence: US)
  Receive Date: 20220406
  Receipt Date: 20220414
  Transmission Date: 20220721
  Serious: Yes (Death, Hospitalization)
  Sender: FDA-Public Use
  Company Number: US-NOVARTISPH-NVSC2022US077487

PATIENT
  Sex: Female
  Weight: 49.1 kg

DRUGS (1)
  1. EXJADE [Suspect]
     Active Substance: DEFERASIROX
     Indication: Iron overload
     Dosage: 500 MG, BID
     Route: 048
     Dates: start: 20180708

REACTIONS (4)
  - Acute respiratory failure [Fatal]
  - Pulmonary oedema [Unknown]
  - Condition aggravated [Unknown]
  - Coronary artery disease [Unknown]
